FAERS Safety Report 13284598 (Version 5)
Quarter: 2017Q3

REPORT INFORMATION
  Report Type: Report from Study
  Country: AU (occurrence: AU)
  Receive Date: 20170301
  Receipt Date: 20170704
  Transmission Date: 20171127
  Serious: Yes (Death, Hospitalization)
  Sender: FDA-Public Use
  Company Number: AU-ROCHE-1890772

PATIENT
  Age: 76 Year
  Sex: Female
  Weight: 63.7 kg

DRUGS (15)
  1. ATEZOLIZUMAB. [Suspect]
     Active Substance: ATEZOLIZUMAB
     Indication: RENAL CELL CARCINOMA
     Dosage: FIXED DOSE PER PROTOCOL. DATE OF THE MOST RECENT DOSE PRIOR TO THE EVENT ONSET: 29/DEC/2016
     Route: 042
     Dates: start: 20160617, end: 20161229
  2. ASPIRIN. [Concomitant]
     Active Substance: ASPIRIN
     Indication: ATRIAL FIBRILLATION
     Route: 048
     Dates: start: 20160405
  3. NORMAL SALINE [Concomitant]
     Active Substance: SODIUM CHLORIDE
     Route: 042
     Dates: start: 20160404, end: 20160404
  4. ENOXAPARIN [Concomitant]
     Active Substance: ENOXAPARIN
     Indication: ACUTE KIDNEY INJURY
     Route: 058
     Dates: start: 201701
  5. CANESTEN [Concomitant]
     Active Substance: CLOTRIMAZOLE
     Indication: RASH
     Route: 061
     Dates: start: 201701
  6. DIGOXIN. [Concomitant]
     Active Substance: DIGOXIN
     Indication: ACUTE KIDNEY INJURY
     Route: 065
     Dates: start: 201701
  7. BEVACIZUMAB. [Suspect]
     Active Substance: BEVACIZUMAB
     Indication: RENAL CELL CARCINOMA
     Dosage: DATE OF THE MOST RECENT DOSE PRIOR TO THE EVENT ONSET: 29/DEC/2016 OF 955 MG?DOSE PER PROTOCOL
     Route: 042
     Dates: start: 20160617, end: 20161229
  8. CEPHALEXIN. [Concomitant]
     Active Substance: CEPHALEXIN
     Indication: URINARY TRACT INFECTION
     Route: 048
     Dates: start: 20161208
  9. CEPHALEXIN. [Concomitant]
     Active Substance: CEPHALEXIN
     Indication: ACUTE KIDNEY INJURY
     Route: 048
     Dates: start: 20160405, end: 20160411
  10. CEPHALEXIN. [Concomitant]
     Active Substance: CEPHALEXIN
     Route: 048
     Dates: start: 201701
  11. RESONIUM [Concomitant]
     Active Substance: SODIUM POLYSTYRENE SULFONATE
     Indication: ACUTE KIDNEY INJURY
     Route: 065
     Dates: start: 201701
  12. PANTOPRAZOLE [Concomitant]
     Active Substance: PANTOPRAZOLE
     Indication: ACUTE KIDNEY INJURY
     Route: 048
     Dates: start: 201701
  13. ASPIRIN. [Concomitant]
     Active Substance: ASPIRIN
     Indication: ACUTE KIDNEY INJURY
     Route: 048
     Dates: start: 201701
  14. NORMAL SALINE [Concomitant]
     Active Substance: SODIUM CHLORIDE
     Dosage: 1 OTHER
     Route: 042
     Dates: start: 20160629, end: 20160630
  15. CARVEDILOL. [Concomitant]
     Active Substance: CARVEDILOL
     Indication: ACUTE KIDNEY INJURY
     Route: 048
     Dates: start: 201701

REACTIONS (1)
  - Septic shock [Fatal]

NARRATIVE: CASE EVENT DATE: 201702
